FAERS Safety Report 5745857-7 (Version None)
Quarter: 2008Q2

REPORT INFORMATION
  Report Type: 
  Country: None (occurrence: None)
  Receive Date: 20080520
  Receipt Date: 20080502
  Transmission Date: 20081010
  Serious: Yes (Death, Hospitalization)
  Sender: FDA-Public Use
  Company Number: JPKYO-S-20080044

PATIENT
  Age: 54 Year
  Sex: Male

DRUGS (1)
  1. NAVELBINE [Suspect]
     Indication: LUNG ADENOCARCINOMA

REACTIONS (4)
  - CARDIO-RESPIRATORY ARREST [None]
  - GASTRIC ULCER [None]
  - PAIN [None]
  - SHOCK [None]
